FAERS Safety Report 20154697 (Version 4)
Quarter: 2022Q1

REPORT INFORMATION
  Report Type: Spontaneous
  Country: IT (occurrence: IT)
  Receive Date: 20211207
  Receipt Date: 20220109
  Transmission Date: 20220423
  Serious: Yes (Hospitalization)
  Sender: FDA-Public Use
  Company Number: IT-SANOFI-00875228

PATIENT
  Age: 46 Year
  Sex: Male

DRUGS (6)
  1. AUBAGIO [Suspect]
     Active Substance: TERIFLUNOMIDE
     Indication: Multiple sclerosis
     Dosage: 14 MG, QD
     Dates: start: 20180426, end: 20211126
  2. ETAPIAM [Suspect]
     Active Substance: ETHAMBUTOL HYDROCHLORIDE
     Dosage: 400 MG, Q8H
  3. RIFADIN [Suspect]
     Active Substance: RIFAMPIN
     Dosage: 300 MG, Q4H
  4. AZITHROMYCIN [Suspect]
     Active Substance: AZITHROMYCIN
     Dosage: 500 MG, QD
  5. PREDNISONE [Suspect]
     Active Substance: PREDNISONE
     Dosage: 5 MG
  6. OMEPRAZOLE [Suspect]
     Active Substance: OMEPRAZOLE
     Dosage: 40 MG

REACTIONS (3)
  - Lung disorder [Recovering/Resolving]
  - Mycobacterium test positive [Recovering/Resolving]
  - Hospitalisation [Recovering/Resolving]

NARRATIVE: CASE EVENT DATE: 20211115
